FAERS Safety Report 7293524-3 (Version None)
Quarter: 2011Q1

REPORT INFORMATION
  Report Type: 
  Country: None (occurrence: None)
  Receive Date: 20110215
  Receipt Date: 20110204
  Transmission Date: 20110831
  Serious: Yes (Other)
  Sender: FDA-Public Use
  Company Number: US-MERCK-1012USA01314

PATIENT
  Age: 46 Year
  Sex: Female

DRUGS (2)
  1. FOSAMAX PLUS D [Suspect]
     Indication: OSTEOPOROSIS
     Route: 048
     Dates: start: 19990901, end: 20091101
  2. FOSAMAX [Suspect]
     Route: 048
     Dates: start: 19990901, end: 20091101

REACTIONS (8)
  - BLOOD CHOLESTEROL INCREASED [None]
  - ORAL DISORDER [None]
  - DEPRESSION [None]
  - ANXIETY [None]
  - HERPES ZOSTER [None]
  - LOW TURNOVER OSTEOPATHY [None]
  - HYPERTENSION [None]
  - FEMUR FRACTURE [None]
